FAERS Safety Report 20806997 (Version 1)
Quarter: 2022Q2

REPORT INFORMATION
  Report Type: Spontaneous
  Country: US (occurrence: US)
  Receive Date: 20220510
  Receipt Date: 20220510
  Transmission Date: 20220721
  Serious: Yes (Hospitalization, Other)
  Sender: FDA-Public Use
  Company Number: US-UNITED THERAPEUTICS-UNT-2022-009732

PATIENT
  Age: 64 Year
  Sex: Female

DRUGS (1)
  1. ORENITRAM [Suspect]
     Active Substance: TREPROSTINIL
     Indication: Pulmonary arterial hypertension
     Dosage: UNK
     Route: 048
     Dates: start: 20220104, end: 20220317

REACTIONS (4)
  - End stage renal disease [Unknown]
  - Feeling abnormal [Unknown]
  - Therapy non-responder [Unknown]
  - Product supply issue [Unknown]

NARRATIVE: CASE EVENT DATE: 20220317
